FAERS Safety Report 5489870-6 (Version None)
Quarter: 2007Q4

REPORT INFORMATION
  Report Type: 
  Country: None (occurrence: None)
  Receive Date: 20071018
  Receipt Date: 20071015
  Transmission Date: 20080405
  Serious: Yes (Other)
  Sender: FDA-Public Use
  Company Number: US-ASTRAZENECA-2007UW23996

PATIENT
  Age: 73 Year
  Sex: Female

DRUGS (1)
  1. ARIMIDEX [Suspect]
     Indication: BREAST CANCER
     Route: 048
     Dates: start: 20060901

REACTIONS (6)
  - BLOOD PRESSURE DECREASED [None]
  - GOUT [None]
  - HERPES ZOSTER [None]
  - HYPERSOMNIA [None]
  - MALAISE [None]
  - PNEUMONIA [None]
